FAERS Safety Report 11940789 (Version 4)
Quarter: 2016Q2

REPORT INFORMATION
  Report Type: Spontaneous
  Country: US (occurrence: US)
  Receive Date: 20160122
  Receipt Date: 20160627
  Transmission Date: 20160815
  Serious: Yes (Hospitalization, Other)
  Sender: FDA-Public Use
  Company Number: PHEH2016US001458

PATIENT
  Age: 69 Year
  Sex: Female
  Weight: 51 kg

DRUGS (6)
  1. EXEMESTANE. [Suspect]
     Active Substance: EXEMESTANE
     Indication: BREAST CANCER STAGE IV
     Dosage: UNK UNK, QD
     Route: 048
     Dates: start: 20150403
  2. EFFEXOR [Concomitant]
     Active Substance: VENLAFAXINE HYDROCHLORIDE
     Indication: PRODUCT USED FOR UNKNOWN INDICATION
     Dosage: 37.5 MG, BID
     Route: 048
  3. AFINITOR [Suspect]
     Active Substance: EVEROLIMUS
     Dosage: 5 MG, QD
     Route: 048
     Dates: start: 20150403
  4. SYNTHROID [Concomitant]
     Active Substance: LEVOTHYROXINE SODIUM
     Indication: PRODUCT USED FOR UNKNOWN INDICATION
     Dosage: 75 UG, QD (EVERY MORNING BEFORE BREAKFAST)
     Route: 048
  5. REMERON [Concomitant]
     Active Substance: MIRTAZAPINE
     Indication: PRODUCT USED FOR UNKNOWN INDICATION
     Dosage: 15 MG, QHS (NIGHTLY)
     Route: 048
  6. AFINITOR [Suspect]
     Active Substance: EVEROLIMUS
     Indication: BREAST CANCER STAGE IV
     Dosage: 10 MG
     Route: 048
     Dates: start: 20150331

REACTIONS (33)
  - Duodenal obstruction [Unknown]
  - Red blood cell count decreased [Unknown]
  - Gastrointestinal oedema [Unknown]
  - Lymphocyte count decreased [Unknown]
  - Haemoglobin decreased [Unknown]
  - Blood creatinine increased [Unknown]
  - Vomiting [Unknown]
  - Abdominal distension [Unknown]
  - Fluid intake reduced [Unknown]
  - Pelvic fluid collection [Unknown]
  - Hypokalaemia [Unknown]
  - Annular pancreas [Unknown]
  - Ascites [Unknown]
  - Pyelocaliectasis [Unknown]
  - Haematocrit decreased [Unknown]
  - Intestinal metaplasia [Unknown]
  - Aspartate aminotransferase increased [Unknown]
  - Diarrhoea [Unknown]
  - Dehydration [Recovered/Resolved]
  - Abdominal pain upper [Unknown]
  - Alveolar lung disease [Unknown]
  - Arteriosclerosis [Unknown]
  - Asthenia [Unknown]
  - Nausea [Unknown]
  - Blood chloride increased [Unknown]
  - Weight decreased [Unknown]
  - Spinal osteoarthritis [Unknown]
  - Neutrophil count increased [Unknown]
  - Osteosclerosis [Unknown]
  - Pleural effusion [Unknown]
  - Dysphagia [Unknown]
  - Abdominal pain [Unknown]
  - Chronic gastritis [Unknown]

NARRATIVE: CASE EVENT DATE: 20151225
